FAERS Safety Report 10206825 (Version 1)
Quarter: 2014Q2

REPORT INFORMATION
  Report Type: Spontaneous
  Country: US (occurrence: None)
  Receive Date: 20140528
  Receipt Date: 20140528
  Transmission Date: 20141212
  Serious: No
  Sender: FDA-Public Use
  Company Number: None

PATIENT
  Age: 60 Year
  Sex: Female
  Weight: 77.11 kg

DRUGS (1)
  1. MIRVASO 0.33% [Suspect]
     Indication: ROSACEA
     Dosage: PEA SIZE DAB TO 4 FACIAL AREAS ONCE DAILY APPLIED TO A SURFACE, USUALLY THE SKIN
     Route: 061
     Dates: start: 20131111, end: 20140512

REACTIONS (4)
  - Pruritus [None]
  - Skin exfoliation [None]
  - Skin discolouration [None]
  - Acne [None]
